FAERS Safety Report 23249885 (Version 1)
Quarter: 2023Q4

REPORT INFORMATION
  Report Type: Spontaneous
  Country: FR (occurrence: FR)
  Receive Date: 20231201
  Receipt Date: 20231201
  Transmission Date: 20240109
  Serious: Yes (Hospitalization)
  Sender: FDA-Public Use
  Company Number: None

PATIENT
  Age: 32 Year
  Sex: Female

DRUGS (14)
  1. MEROPENEM [Suspect]
     Active Substance: MEROPENEM
     Indication: Infective pulmonary exacerbation of cystic fibrosis
     Dosage: 2 GRAM; RECEIVED SINGLE DOSE
     Route: 042
  2. PIPERACILLIN SODIUM\TAZOBACTAM SODIUM [Suspect]
     Active Substance: PIPERACILLIN SODIUM\TAZOBACTAM SODIUM
     Indication: Infective pulmonary exacerbation of cystic fibrosis
     Dosage: 4 GRAM, TID
     Route: 042
  3. PANCREATIN [Suspect]
     Active Substance: PANCRELIPASE
     Indication: Pancreatic failure
     Dosage: UNK, QD
     Route: 065
  4. LEVOTHYROXINE SODIUM [Suspect]
     Active Substance: LEVOTHYROXINE SODIUM
     Indication: Pancreatic failure
     Dosage: UNK, QD
     Route: 065
  5. INSULIN NOS [Suspect]
     Active Substance: INSULIN NOS
     Indication: Pancreatic failure
     Dosage: UNK, QD
     Route: 065
  6. MONTELUKAST [Suspect]
     Active Substance: MONTELUKAST SODIUM
     Indication: Cystic fibrosis lung
     Dosage: UNK, QD
     Route: 065
  7. MONTELUKAST [Suspect]
     Active Substance: MONTELUKAST SODIUM
     Indication: Respiratory failure
  8. MONTELUKAST [Suspect]
     Active Substance: MONTELUKAST SODIUM
     Indication: Pseudomonas infection
  9. AZITHROMYCIN [Suspect]
     Active Substance: AZITHROMYCIN
     Indication: Cystic fibrosis lung
     Dosage: UNK, QD
     Route: 065
  10. AZITHROMYCIN [Suspect]
     Active Substance: AZITHROMYCIN
     Indication: Respiratory failure
  11. AZITHROMYCIN [Suspect]
     Active Substance: AZITHROMYCIN
     Indication: Pseudomonas infection
  12. LINEZOLID [Suspect]
     Active Substance: LINEZOLID
     Indication: Infective pulmonary exacerbation of cystic fibrosis
     Dosage: 1200 MILLIGRAM, BID
     Route: 048
  13. TOBRAMYCIN [Suspect]
     Active Substance: TOBRAMYCIN
     Indication: Infective pulmonary exacerbation of cystic fibrosis
     Dosage: 500 MILLIGRAM, QD
     Route: 065
  14. CIPROFLOXACIN [Suspect]
     Active Substance: CIPROFLOXACIN
     Indication: Infective pulmonary exacerbation of cystic fibrosis
     Dosage: 750 MILLIGRAM, BID
     Route: 065

REACTIONS (3)
  - Premature delivery [Unknown]
  - Maternal exposure during pregnancy [Unknown]
  - Drug ineffective [Unknown]
